FAERS Safety Report 10828738 (Version 1)
Quarter: 2015Q1

REPORT INFORMATION
  Report Type: Report from Study
  Country: PR (occurrence: PR)
  Receive Date: 20150219
  Receipt Date: 20150219
  Transmission Date: 20150721
  Serious: No
  Sender: FDA-Public Use
  Company Number: PR-ABBVIE-14P-131-1203475-00

PATIENT
  Sex: Female
  Weight: 68.1 kg

DRUGS (4)
  1. HUMIRA [Suspect]
     Active Substance: ADALIMUMAB
     Indication: PRODUCT USED FOR UNKNOWN INDICATION
     Route: 058
     Dates: start: 2010, end: 201401
  2. BONIVA [Concomitant]
     Active Substance: IBANDRONATE SODIUM
     Indication: RHEUMATOID ARTHRITIS
     Route: 048
     Dates: start: 2010
  3. METHOTREXATE [Concomitant]
     Active Substance: METHOTREXATE
     Indication: RHEUMATOID ARTHRITIS
     Dates: start: 2010
  4. UNKNOWN MEDICATION [Concomitant]
     Active Substance: UNSPECIFIED INGREDIENT
     Indication: TYPE 2 DIABETES MELLITUS
     Dates: start: 2010

REACTIONS (2)
  - Arthritis [Unknown]
  - Drug ineffective [Unknown]
